FAERS Safety Report 22616050 (Version 3)
Quarter: 2024Q4

REPORT INFORMATION
  Report Type: Report from Study
  Country: US (occurrence: US)
  Receive Date: 20230619
  Receipt Date: 20241011
  Transmission Date: 20250115
  Serious: Yes (Death, Other)
  Sender: NOVARTIS
  Company Number: US-002147023-NVSC2023US139519

PATIENT
  Sex: Male
  Weight: 80.7 kg

DRUGS (1)
  1. ENTRESTO [Suspect]
     Active Substance: SACUBITRIL\VALSARTAN
     Indication: Ischaemic cardiomyopathy
     Dosage: UNK, 24-26 MG
     Route: 048
     Dates: start: 202201

REACTIONS (2)
  - Death [Fatal]
  - Hyperkalaemia [Recovered/Resolved]
